FAERS Safety Report 15271627 (Version 1)
Quarter: 2018Q3

REPORT INFORMATION
  Report Type: Spontaneous
  Country: US (occurrence: US)
  Receive Date: 20180727
  Receipt Date: 20180727
  Transmission Date: 20181010
  Serious: No
  Sender: FDA-Public Use
  Company Number: None

PATIENT
  Age: 37 Year
  Sex: Male
  Weight: 130.5 kg

DRUGS (2)
  1. SUBOXONE 8/2 MG TABLETS [Concomitant]
     Dates: start: 20180628, end: 20180724
  2. SUBOXONE [Suspect]
     Active Substance: BUPRENORPHINE HYDROCHLORIDE\NALOXONE HYDROCHLORIDE
     Indication: DRUG DEPENDENCE
     Route: 060

REACTIONS (5)
  - Headache [None]
  - Nausea [None]
  - Vomiting [None]
  - Malabsorption [None]
  - Product substitution issue [None]

NARRATIVE: CASE EVENT DATE: 20180227
